FAERS Safety Report 11495920 (Version 1)
Quarter: 2015Q3

REPORT INFORMATION
  Report Type: Spontaneous
  Country: DE (occurrence: DE)
  Receive Date: 20150911
  Receipt Date: 20150911
  Transmission Date: 20151125
  Serious: Yes (Other)
  Sender: FDA-Public Use
  Company Number: DE-SA-2015SA136892

PATIENT
  Sex: Female
  Weight: 78 kg

DRUGS (3)
  1. SORTIS [Concomitant]
     Active Substance: ATORVASTATIN
     Route: 048
     Dates: start: 201506
  2. MULTAQ [Suspect]
     Active Substance: DRONEDARONE
     Route: 048
     Dates: start: 201304
  3. DIOVAN [Concomitant]
     Active Substance: VALSARTAN
     Route: 048
     Dates: start: 2010

REACTIONS (6)
  - Decreased vibratory sense [Not Recovered/Not Resolved]
  - Polyneuropathy [Not Recovered/Not Resolved]
  - Dysaesthesia [Not Recovered/Not Resolved]
  - Hypoaesthesia [Not Recovered/Not Resolved]
  - Muscle spasms [Not Recovered/Not Resolved]
  - Hyporeflexia [Not Recovered/Not Resolved]
